FAERS Safety Report 6744205-3 (Version None)
Quarter: 2010Q2

REPORT INFORMATION
  Report Type: 
  Country: None (occurrence: None)
  Receive Date: 20100527
  Receipt Date: 20100518
  Transmission Date: 20101027
  Serious: Yes (Other)
  Sender: FDA-Public Use
  Company Number: GXKR2010CN05590

PATIENT
  Age: 40 Year
  Sex: Female

DRUGS (4)
  1. AMLODIPINE [Interacting]
     Indication: HYPERTENSION
     Dosage: 2.5 MG, Q12H
     Route: 048
  2. MAGNESIUM SULFATE (NGX) [Suspect]
     Indication: PRE-ECLAMPSIA
     Dosage: 2 G, AS LOADING DOSE
  3. MAGNESIUM SULFATE (NGX) [Suspect]
     Dosage: 10 G, UNK
  4. LABETALOL HCL [Concomitant]
     Indication: HYPERTENSION
     Dosage: 100 MG, Q12H

REACTIONS (4)
  - DRUG EXPOSURE DURING PREGNANCY [None]
  - DRUG INTERACTION [None]
  - MOVEMENT DISORDER [None]
  - NEUROMUSCULAR BLOCKADE [None]
